FAERS Safety Report 14255436 (Version 5)
Quarter: 2018Q1

REPORT INFORMATION
  Report Type: Report from Study
  Country: US (occurrence: US)
  Receive Date: 20171206
  Receipt Date: 20180222
  Transmission Date: 20180508
  Serious: Yes (Hospitalization, Other)
  Sender: FDA-Public Use
  Company Number: US-GILEAD-2017-0308092

PATIENT
  Age: 72 Year
  Sex: Male

DRUGS (2)
  1. AMBRISENTAN [Suspect]
     Active Substance: AMBRISENTAN
     Dosage: 5 MG, BID
     Route: 065
  2. AMBRISENTAN [Suspect]
     Active Substance: AMBRISENTAN
     Indication: PULMONARY ARTERIAL HYPERTENSION
     Dosage: 10 MG, QD
     Route: 065

REACTIONS (12)
  - Bladder pain [Unknown]
  - Post procedural haemorrhage [Recovering/Resolving]
  - Macular degeneration [Not Recovered/Not Resolved]
  - Face injury [Recovered/Resolved]
  - Haemoglobin decreased [Not Recovered/Not Resolved]
  - Hypoaesthesia [Not Recovered/Not Resolved]
  - Fall [Recovered/Resolved]
  - Colonoscopy [Unknown]
  - Off label use [Unknown]
  - Arthralgia [Not Recovered/Not Resolved]
  - Loss of consciousness [Recovering/Resolving]
  - Oedema [Recovering/Resolving]

NARRATIVE: CASE EVENT DATE: 20160825
